FAERS Safety Report 17160662 (Version 1)
Quarter: 2019Q4

REPORT INFORMATION
  Report Type: Spontaneous
  Country: US (occurrence: US)
  Receive Date: 20191216
  Receipt Date: 20191216
  Transmission Date: 20200122
  Serious: Yes (Other)
  Sender: FDA-Public Use
  Company Number: US-JNJFOC-20191212049

PATIENT
  Age: 67 Year
  Sex: Female

DRUGS (1)
  1. INVOKANA [Suspect]
     Active Substance: CANAGLIFLOZIN
     Indication: PRODUCT USED FOR UNKNOWN INDICATION
     Route: 048
     Dates: start: 20160121, end: 20161227

REACTIONS (4)
  - Gangrene [Unknown]
  - Osteomyelitis [Unknown]
  - Diabetic foot infection [Unknown]
  - Toe amputation [Unknown]

NARRATIVE: CASE EVENT DATE: 20160215
